FAERS Safety Report 5257218-8 (Version None)
Quarter: 2007Q1

REPORT INFORMATION
  Report Type: 
  Country: None (occurrence: None)
  Receive Date: 20070302
  Receipt Date: 20070220
  Transmission Date: 20070707
  Serious: Yes (Other)
  Sender: FDA-Public Use
  Company Number: S07-USA-00393-01

PATIENT
  Age: 45 Year
  Sex: Male

DRUGS (4)
  1. LEXAPRO [Suspect]
     Indication: DEPRESSION
     Dosage: 10 MG QD PO
     Route: 048
     Dates: start: 20050524, end: 20060201
  2. ALCOHOL [Suspect]
     Dates: start: 20060225, end: 20060225
  3. AVALIDE [Concomitant]
  4. ASPIRIN [Concomitant]

REACTIONS (5)
  - AGGRESSION [None]
  - ALCOHOL USE [None]
  - DRUG WITHDRAWAL SYNDROME [None]
  - HOMICIDE [None]
  - IMPRISONMENT [None]
